FAERS Safety Report 5227354-0 (Version None)
Quarter: 2007Q1

REPORT INFORMATION
  Report Type: 
  Country: None (occurrence: None)
  Receive Date: 20070202
  Receipt Date: 20070129
  Transmission Date: 20070707
  Serious: Yes (Other)
  Sender: FDA-Public Use
  Company Number: 2007UW01798

PATIENT
  Age: 68 Year
  Sex: Male
  Weight: 104.3 kg

DRUGS (6)
  1. TOPROL-XL [Suspect]
     Indication: HEART RATE IRREGULAR
     Route: 048
     Dates: start: 20060101
  2. CARTIA XT [Concomitant]
  3. PREVACID [Concomitant]
  4. MINOCYCLINE HCL [Concomitant]
  5. LIPITOR [Concomitant]
  6. COUMADIN [Concomitant]

REACTIONS (3)
  - DIZZINESS [None]
  - FALL [None]
  - LOSS OF CONSCIOUSNESS [None]
